FAERS Safety Report 8904314 (Version 2)
Quarter: 2012Q4

REPORT INFORMATION
  Report Type: Report from Study
  Country: DE (occurrence: DE)
  Receive Date: 20121112
  Receipt Date: 20121119
  Transmission Date: 20130627
  Serious: Yes (Hospitalization)
  Sender: FDA-Public Use
  Company Number: DE-GLAXOSMITHKLINE-B0843710A

PATIENT
  Age: 29 Year
  Sex: Female
  Weight: 59 kg

DRUGS (8)
  1. LAPATINIB [Suspect]
     Indication: BREAST NEOPLASM
     Dosage: 750MG Per day
     Route: 048
     Dates: start: 20121030
  2. TRASTUZUMAB [Suspect]
     Indication: BREAST NEOPLASM
     Dosage: 472MG Every 3 weeks
     Route: 042
     Dates: start: 20121030
  3. MYOCET [Suspect]
     Indication: BREAST NEOPLASM
     Dosage: 34MG Weekly
     Route: 042
     Dates: start: 20121030
  4. PACLITAXEL [Suspect]
     Indication: BREAST NEOPLASM
     Dosage: 136MG Weekly
     Route: 042
     Dates: start: 20121030
  5. DEXAMETHASONE [Concomitant]
     Dosage: 12MG per day
     Dates: start: 20121030, end: 20121030
  6. TAVEGIL [Concomitant]
     Dates: start: 20121030, end: 20121030
  7. GRANISETRON [Concomitant]
     Dosage: 1MG per day
     Dates: start: 20121030, end: 20121030
  8. RANITIDINE [Concomitant]
     Dates: start: 20121030, end: 20121030

REACTIONS (1)
  - Pyrexia [Recovered/Resolved]
